FAERS Safety Report 10098676 (Version 1)
Quarter: 2014Q2

REPORT INFORMATION
  Report Type: Spontaneous
  Country: US (occurrence: US)
  Receive Date: 20140423
  Receipt Date: 20140423
  Transmission Date: 20141212
  Serious: Yes (Hospitalization)
  Sender: FDA-Public Use
  Company Number: US-BAYER-2014-057932

PATIENT
  Age: 28 Year
  Sex: Female

DRUGS (3)
  1. YASMIN [Suspect]
  2. NAPROSYN [Concomitant]
     Dosage: 500 MG, UNK
  3. PERCOCET [Concomitant]
     Dosage: 1 DF, BID

REACTIONS (1)
  - Deep vein thrombosis [None]
